FAERS Safety Report 17200685 (Version 1)
Quarter: 2019Q4

REPORT INFORMATION
  Report Type: Spontaneous
  Country: NL (occurrence: NL)
  Receive Date: 20191226
  Receipt Date: 20191226
  Transmission Date: 20200122
  Serious: Yes (Hospitalization, Other)
  Sender: FDA-Public Use
  Company Number: NL-MICRO LABS LIMITED-ML2019-03836

PATIENT
  Age: 53 Year
  Sex: Female

DRUGS (1)
  1. TRANEXAMIC ACID. [Suspect]
     Active Substance: TRANEXAMIC ACID

REACTIONS (8)
  - Spinal compression fracture [Recovered/Resolved]
  - Product appearance confusion [Unknown]
  - Muscular weakness [Unknown]
  - Product administration error [Unknown]
  - Drug monitoring procedure incorrectly performed [Unknown]
  - Wrong product administered [Unknown]
  - Myoclonus [Unknown]
  - Haemodynamic instability [Unknown]
